FAERS Safety Report 19705408 (Version 1)
Quarter: 2021Q3

REPORT INFORMATION
  Report Type: Spontaneous
  Country: CA (occurrence: CA)
  Receive Date: 20210816
  Receipt Date: 20210816
  Transmission Date: 20211014
  Serious: Yes (Other)
  Sender: FDA-Public Use
  Company Number: CA-ABBVIE-21K-028-4038263-00

PATIENT
  Age: 21 Year
  Sex: Female

DRUGS (1)
  1. HUMIRA [Suspect]
     Active Substance: ADALIMUMAB
     Indication: PRODUCT USED FOR UNKNOWN INDICATION
     Route: 058
     Dates: start: 2019, end: 2021

REACTIONS (8)
  - Condition aggravated [Unknown]
  - Depression [Not Recovered/Not Resolved]
  - Scar [Unknown]
  - Pain [Recovering/Resolving]
  - Discouragement [Unknown]
  - Drug ineffective [Unknown]
  - Mobility decreased [Recovering/Resolving]
  - Acne [Unknown]

NARRATIVE: CASE EVENT DATE: 2021
